FAERS Safety Report 18773703 (Version 1)
Quarter: 2021Q1

REPORT INFORMATION
  Report Type: Spontaneous
  Country: US (occurrence: US)
  Receive Date: 20210122
  Receipt Date: 20210122
  Transmission Date: 20210419
  Serious: Yes (Hospitalization)
  Sender: FDA-Public Use
  Company Number: None

PATIENT
  Sex: Male
  Weight: 58.8 kg

DRUGS (1)
  1. CISPLATIN. [Suspect]
     Active Substance: CISPLATIN

REACTIONS (9)
  - Disease progression [None]
  - Ophthalmoplegia [None]
  - Staphylococcal sepsis [None]
  - Periorbital cellulitis [None]
  - Stomatitis [None]
  - Cellulitis orbital [None]
  - Paralysis [None]
  - Purulent discharge [None]
  - Nasal obstruction [None]

NARRATIVE: CASE EVENT DATE: 20201203
